FAERS Safety Report 5455577-4 (Version None)
Quarter: 2007Q3

REPORT INFORMATION
  Report Type: 
  Country: None (occurrence: None)
  Receive Date: 20070918
  Receipt Date: 20070228
  Transmission Date: 20080115
  Serious: Yes (Other)
  Sender: FDA-Public Use
  Company Number: US-ASTRAZENECA-2006UW21769

PATIENT
  Sex: Female
  Weight: 90 kg

DRUGS (3)
  1. SEROQUEL [Suspect]
     Indication: SCHIZOPHRENIA, PARANOID TYPE
     Dosage: 600 - 900 MG
     Route: 048
     Dates: start: 20050118
  2. SEROQUEL [Suspect]
     Indication: POST-TRAUMATIC STRESS DISORDER
     Dosage: 600 - 900 MG
     Route: 048
     Dates: start: 20050118
  3. SEROQUEL [Suspect]
     Indication: BIPOLAR I DISORDER
     Dosage: 600 - 900 MG
     Route: 048
     Dates: start: 20050118

REACTIONS (1)
  - PANCREATITIS [None]
